FAERS Safety Report 22156446 (Version 2)
Quarter: 2023Q2

REPORT INFORMATION
  Report Type: Spontaneous
  Country: US (occurrence: US)
  Receive Date: 20230330
  Receipt Date: 20230412
  Transmission Date: 20230721
  Serious: Yes (Other)
  Sender: FDA-Public Use
  Company Number: US-002147023-NVSC2023US069361

PATIENT
  Sex: Female

DRUGS (21)
  1. AZITHROMYCIN [Suspect]
     Active Substance: AZITHROMYCIN
     Indication: Mycobacterium avium complex infection
     Dosage: UNK
     Route: 048
     Dates: end: 200912
  2. AZITHROMYCIN [Suspect]
     Active Substance: AZITHROMYCIN
     Dosage: UNK
     Route: 048
     Dates: start: 201009
  3. ETHAMBUTOL [Suspect]
     Active Substance: ETHAMBUTOL HYDROCHLORIDE
     Indication: Mycobacterium avium complex infection
     Dosage: UNK
     Route: 065
     Dates: end: 200912
  4. ETHAMBUTOL [Suspect]
     Active Substance: ETHAMBUTOL HYDROCHLORIDE
     Dosage: UNK
     Route: 065
     Dates: start: 201009
  5. RIFAMPIN [Suspect]
     Active Substance: RIFAMPIN
     Indication: Mycobacterium avium complex infection
     Dosage: UNK
     Route: 065
     Dates: end: 200810
  6. CLOFAZIMINE [Suspect]
     Active Substance: CLOFAZIMINE
     Indication: Mycobacterium avium complex infection
     Dosage: 100 MG, QD
     Route: 065
     Dates: end: 200912
  7. CLOFAZIMINE [Suspect]
     Active Substance: CLOFAZIMINE
     Dosage: UNK
     Route: 065
     Dates: start: 201009
  8. AMIKACIN [Suspect]
     Active Substance: AMIKACIN
     Indication: Mycobacterium avium complex infection
     Dosage: UNK
     Route: 042
     Dates: end: 200912
  9. AMIKACIN [Suspect]
     Active Substance: AMIKACIN
     Dosage: UNK
     Route: 042
     Dates: start: 201009
  10. AMIKACIN [Suspect]
     Active Substance: AMIKACIN
     Dosage: UNK
  11. IMIPENEM [Suspect]
     Active Substance: IMIPENEM
     Indication: Mycobacterium avium complex infection
     Dosage: UNK
     Route: 065
  12. BACTRIM [Concomitant]
     Active Substance: SULFAMETHOXAZOLE\TRIMETHOPRIM
     Indication: Nocardiosis
     Dosage: UNK
     Route: 065
     Dates: start: 201111
  13. OMADACYCLINE [Concomitant]
     Active Substance: OMADACYCLINE
     Indication: Product used for unknown indication
     Dosage: 2 TAB,150 MG
     Route: 065
     Dates: start: 20230310
  14. ZYVOX [Concomitant]
     Active Substance: LINEZOLID
     Indication: Product used for unknown indication
     Dosage: 600 MG
     Route: 065
     Dates: start: 20230310
  15. MIRTAZAPINE [Concomitant]
     Active Substance: MIRTAZAPINE
     Indication: Product used for unknown indication
     Dosage: 30 MG
     Route: 065
     Dates: start: 20230223
  16. ALBUTEROL [Concomitant]
     Active Substance: ALBUTEROL
     Indication: Product used for unknown indication
     Dosage: 2 PUFF, Q6H (90 MICROGRAM)
     Route: 065
     Dates: start: 20221230
  17. ALBUTEROL [Concomitant]
     Active Substance: ALBUTEROL
     Dosage: 2.5 MG, QD (2.5 MG/3 ML, 0.083 %)
     Route: 065
  18. SODIUM CHLORIDE [Concomitant]
     Active Substance: SODIUM CHLORIDE
     Indication: Product used for unknown indication
     Dosage: 4 ML
     Dates: start: 20221230
  19. SODIUM CHLORIDE [Concomitant]
     Active Substance: SODIUM CHLORIDE
     Dosage: 3 ML, QD
  20. ERGOCALCIFEROL [Concomitant]
     Active Substance: ERGOCALCIFEROL
     Indication: Product used for unknown indication
     Dosage: 2000 IU (1250 MCG)
     Route: 048
     Dates: start: 20180424
  21. PROGESTERONE [Concomitant]
     Active Substance: PROGESTERONE
     Indication: Product used for unknown indication
     Dosage: 1 DOSAGE FORM
     Route: 065
     Dates: start: 20110830

REACTIONS (5)
  - Mycobacterium abscessus infection [Unknown]
  - Clostridium difficile colitis [Unknown]
  - Limb discomfort [Unknown]
  - Pyrexia [Unknown]
  - Hypoaesthesia [Unknown]

NARRATIVE: CASE EVENT DATE: 20080101
